FAERS Safety Report 25802434 (Version 1)
Quarter: 2025Q3

REPORT INFORMATION
  Report Type: Spontaneous
  Country: IN (occurrence: IN)
  Receive Date: 20250915
  Receipt Date: 20250915
  Transmission Date: 20251021
  Serious: Yes (Other)
  Sender: UCB
  Company Number: IN-UCBSA-2025054873

PATIENT
  Sex: Female

DRUGS (37)
  1. LEVETIRACETAM [Suspect]
     Active Substance: LEVETIRACETAM
     Indication: Generalised tonic-clonic seizure
  2. LEVETIRACETAM [Suspect]
     Active Substance: LEVETIRACETAM
     Indication: Status epilepticus
  3. LEVETIRACETAM [Suspect]
     Active Substance: LEVETIRACETAM
     Indication: Off label use
  4. FOSPHENYTOIN [Concomitant]
     Active Substance: FOSPHENYTOIN
     Indication: Generalised tonic-clonic seizure
     Route: 042
  5. FOSPHENYTOIN [Concomitant]
     Active Substance: FOSPHENYTOIN
     Indication: Status epilepticus
     Route: 042
  6. FOSPHENYTOIN [Concomitant]
     Active Substance: FOSPHENYTOIN
     Route: 042
  7. PHENOBARBITAL [Concomitant]
     Active Substance: PHENOBARBITAL
     Indication: Generalised tonic-clonic seizure
  8. PHENOBARBITAL [Concomitant]
     Active Substance: PHENOBARBITAL
     Indication: Status epilepticus
  9. LORAZEPAM [Concomitant]
     Active Substance: LORAZEPAM
     Indication: Generalised tonic-clonic seizure
  10. LORAZEPAM [Concomitant]
     Active Substance: LORAZEPAM
     Indication: Status epilepticus
  11. LACOSAMIDE [Concomitant]
     Active Substance: LACOSAMIDE
     Indication: Generalised tonic-clonic seizure
  12. LACOSAMIDE [Concomitant]
     Active Substance: LACOSAMIDE
     Indication: Status epilepticus
     Dosage: 400 MILLIGRAM, 2X/DAY (BID)
  13. LACOSAMIDE [Concomitant]
     Active Substance: LACOSAMIDE
     Dosage: 200 MILLIGRAM, 2X/DAY (BID)
  14. OXCARBAZEPINE [Concomitant]
     Active Substance: OXCARBAZEPINE
     Indication: Generalised tonic-clonic seizure
  15. OXCARBAZEPINE [Concomitant]
     Active Substance: OXCARBAZEPINE
     Indication: Status epilepticus
  16. PERAMPANEL [Concomitant]
     Active Substance: PERAMPANEL
     Indication: Generalised tonic-clonic seizure
  17. PERAMPANEL [Concomitant]
     Active Substance: PERAMPANEL
     Indication: Status epilepticus
  18. VALPROATE SODIUM [Concomitant]
     Active Substance: VALPROATE SODIUM
     Indication: Generalised tonic-clonic seizure
     Route: 042
  19. VALPROATE SODIUM [Concomitant]
     Active Substance: VALPROATE SODIUM
     Indication: Status epilepticus
     Route: 042
  20. CLOBAZAM [Concomitant]
     Active Substance: CLOBAZAM
     Indication: Generalised tonic-clonic seizure
  21. CLOBAZAM [Concomitant]
     Active Substance: CLOBAZAM
     Indication: Status epilepticus
  22. MIDAZOLAM [Concomitant]
     Active Substance: MIDAZOLAM
     Indication: Anaesthesia
  23. MIDAZOLAM [Concomitant]
     Active Substance: MIDAZOLAM
  24. MIDAZOLAM [Concomitant]
     Active Substance: MIDAZOLAM
  25. MIDAZOLAM [Concomitant]
     Active Substance: MIDAZOLAM
     Route: 042
  26. MIDAZOLAM [Concomitant]
     Active Substance: MIDAZOLAM
  27. KETAMINE [Concomitant]
     Active Substance: KETAMINE
     Indication: Anaesthesia
  28. KETAMINE [Concomitant]
     Active Substance: KETAMINE
  29. PROPOFOL [Concomitant]
     Active Substance: PROPOFOL
     Indication: Anaesthesia
  30. PROPOFOL [Concomitant]
     Active Substance: PROPOFOL
  31. THIOPENTAL [Concomitant]
     Active Substance: THIOPENTAL
     Indication: Anaesthesia
  32. METHYLPREDNISOLONE [Concomitant]
     Active Substance: METHYLPREDNISOLONE
     Indication: Encephalitis autoimmune
  33. MISOPROSTOL [Concomitant]
     Active Substance: MISOPROSTOL
     Indication: Abortion induced
  34. OXYTOCIN [Concomitant]
     Active Substance: OXYTOCIN
     Indication: Abortion induced
     Route: 042
  35. ROCURONIUM [Concomitant]
     Active Substance: ROCURONIUM BROMIDE
     Indication: Electroconvulsive therapy
  36. ATRACURIUM [Concomitant]
     Active Substance: ATRACURIUM
     Indication: Electroconvulsive therapy
  37. MAGNESIUM SULFATE [Concomitant]
     Active Substance: MAGNESIUM SULFATE
     Indication: Seizure

REACTIONS (4)
  - Abortion induced [Unknown]
  - Maternal exposure during pregnancy [Unknown]
  - Off label use [Unknown]
  - Drug ineffective for unapproved indication [Unknown]
